FAERS Safety Report 24247197 (Version 1)
Quarter: 2024Q3

REPORT INFORMATION
  Report Type: Spontaneous
  Country: US (occurrence: US)
  Receive Date: 20240826
  Receipt Date: 20240826
  Transmission Date: 20241017
  Serious: No
  Sender: ALCON
  Company Number: US-ALCON LABORATORIES-ALC2024US002502

PATIENT
  Age: 35 Year
  Sex: Female

DRUGS (2)
  1. ZADITOR [Suspect]
     Active Substance: KETOTIFEN FUMARATE
     Indication: Eye pruritus
     Dosage: UNK
     Route: 047
     Dates: start: 2023
  2. ZADITOR [Suspect]
     Active Substance: KETOTIFEN FUMARATE
     Indication: Eye allergy

REACTIONS (3)
  - Eye infection [Not Recovered/Not Resolved]
  - Vision blurred [Not Recovered/Not Resolved]
  - Eye pain [Not Recovered/Not Resolved]
